FAERS Safety Report 12849096 (Version 2)
Quarter: 2017Q1

REPORT INFORMATION
  Report Type: Report from Study
  Country: BR (occurrence: BR)
  Receive Date: 20161014
  Receipt Date: 20170206
  Transmission Date: 20170428
  Serious: Yes (Hospitalization, Other)
  Sender: FDA-Public Use
  Company Number: BR-JNJFOC-20161007768

PATIENT
  Age: 50 Year
  Sex: Male

DRUGS (3)
  1. RISPERDAL [Concomitant]
     Active Substance: RISPERIDONE
     Route: 065
  2. LAMOTRIGINE. [Concomitant]
     Active Substance: LAMOTRIGINE
     Route: 065
  3. REMICADE [Suspect]
     Active Substance: INFLIXIMAB
     Indication: RHEUMATOID ARTHRITIS
     Route: 042
     Dates: end: 201611

REACTIONS (5)
  - Hypoacusis [Not Recovered/Not Resolved]
  - Cognitive disorder [Unknown]
  - Speech disorder [Unknown]
  - Behcet^s syndrome [Unknown]
  - Encephalitis viral [Recovered/Resolved with Sequelae]

NARRATIVE: CASE EVENT DATE: 20160523
